FAERS Safety Report 9725743 (Version 3)
Quarter: 2014Q1

REPORT INFORMATION
  Report Type: Spontaneous
  Country: US (occurrence: US)
  Receive Date: 20131203
  Receipt Date: 20140225
  Transmission Date: 20141002
  Serious: Yes (Hospitalization, Other)
  Sender: FDA-Public Use
  Company Number: US-JNJFOC-20131118280

PATIENT
  Age: 74 Year
  Sex: Female

DRUGS (7)
  1. XARELTO [Suspect]
     Indication: DEEP VEIN THROMBOSIS
     Route: 048
  2. XARELTO [Suspect]
     Indication: DEEP VEIN THROMBOSIS
     Route: 048
     Dates: start: 201302, end: 201305
  3. ZOLOFT [Concomitant]
     Route: 065
  4. SYNTHROID [Concomitant]
     Route: 065
  5. PRILOSEC [Concomitant]
     Route: 065
  6. SYMBICORT [Concomitant]
     Route: 065
  7. XANAX [Concomitant]
     Route: 065

REACTIONS (2)
  - Pulmonary embolism [Not Recovered/Not Resolved]
  - Treatment failure [Unknown]
